FAERS Safety Report 6442820-8 (Version None)
Quarter: 2009Q4

REPORT INFORMATION
  Report Type: 
  Country: None (occurrence: None)
  Receive Date: 20091112
  Receipt Date: 20091105
  Transmission Date: 20100525
  Serious: No
  Sender: FDA-Public Use
  Company Number: MOZO-1000257

PATIENT
  Age: 28 Year
  Sex: Female
  Weight: 77 kg

DRUGS (5)
  1. MOZOBIL [Suspect]
     Indication: HAEMATOPOIETIC STEM CELL MOBILISATION
     Dosage: 1.2 ML, ONCE, SUBCUTANEOUS
     Route: 058
     Dates: start: 20090818, end: 20090818
  2. MOZOBIL [Suspect]
     Indication: NON-HODGKIN'S LYMPHOMA
     Dosage: 1.2 ML, ONCE, SUBCUTANEOUS
     Route: 058
     Dates: start: 20090818, end: 20090818
  3. HYOSCINE HBR HYT [Concomitant]
  4. DIPIDOLOR (PIRITRAMIDE) [Concomitant]
  5. LOPERAMIDE HCL [Concomitant]

REACTIONS (2)
  - ABDOMINAL PAIN [None]
  - DIARRHOEA [None]
